FAERS Safety Report 23558964 (Version 1)
Quarter: 2024Q1

REPORT INFORMATION
  Report Type: Spontaneous
  Country: US (occurrence: None)
  Receive Date: 20240223
  Receipt Date: 20240223
  Transmission Date: 20240409
  Serious: Yes (Death, Hospitalization)
  Sender: FDA-Public Use
  Company Number: None

PATIENT
  Age: 14 Year
  Sex: Male
  Weight: 55.3 kg

DRUGS (2)
  1. BUSULFAN [Suspect]
     Active Substance: BUSULFAN
     Dates: end: 20230812
  2. CYCLOPHOSPHAMIDE [Suspect]
     Active Substance: CYCLOPHOSPHAMIDE
     Dates: end: 20230819

REACTIONS (7)
  - Pulmonary mucormycosis [None]
  - Acute respiratory distress syndrome [None]
  - Septic shock [None]
  - Multiple organ dysfunction syndrome [None]
  - Metabolic acidosis [None]
  - Lactic acidosis [None]
  - Cardiac arrest [None]

NARRATIVE: CASE EVENT DATE: 20240215
